FAERS Safety Report 8812450 (Version 2)
Quarter: 2015Q2

REPORT INFORMATION
  Report Type: Report from Study
  Country: US (occurrence: US)
  Receive Date: 20120927
  Receipt Date: 20150409
  Transmission Date: 20150821
  Serious: Yes (Death, Hospitalization)
  Sender: FDA-Public Use
  Company Number: US-ROCHE-1127552

PATIENT
  Sex: Female
  Weight: 81.36 kg

DRUGS (15)
  1. TAXOTERE [Concomitant]
     Active Substance: DOCETAXEL
     Dosage: 08/SEP/2006?75 MG/M2
     Route: 042
     Dates: start: 20060818
  2. DECADRON [Concomitant]
     Active Substance: DEXAMETHASONE
     Dosage: 08/SEP/2006
     Route: 042
  3. PROTONIX (UNITED STATES) [Concomitant]
  4. EFFEXOR [Concomitant]
     Active Substance: VENLAFAXINE HYDROCHLORIDE
     Route: 065
  5. NEULASTA [Concomitant]
     Active Substance: PEGFILGRASTIM
     Dosage: 15/SEP/2006
     Route: 058
     Dates: start: 20060819
  6. DECADRON [Concomitant]
     Active Substance: DEXAMETHASONE
     Dosage: 24/AUG/2006,
     Route: 042
  7. GLUCOTROL [Concomitant]
     Active Substance: GLIPIZIDE
  8. REGLAN [Concomitant]
     Active Substance: METOCLOPRAMIDE HYDROCHLORIDE
  9. NORMAL SALINE [Concomitant]
     Active Substance: SODIUM CHLORIDE
     Route: 065
  10. AVASTIN [Suspect]
     Active Substance: BEVACIZUMAB
     Indication: LUNG NEOPLASM MALIGNANT
     Dosage: 15 MG/KG?THERAPY DATE: 15/SEP/2006
     Route: 042
     Dates: start: 20060818
  11. DECADRON [Concomitant]
     Active Substance: DEXAMETHASONE
     Dosage: THERAPY DATES: 10/MAR/2006, 31/MAR/2006, 21/APR/2006, 18/AUG/2006
     Route: 040
     Dates: start: 20060217
  12. POTASSIUM CHLORIDE. [Concomitant]
     Active Substance: POTASSIUM CHLORIDE
  13. LORTAB (UNITED STATES) [Concomitant]
     Dosage: AS NEDDED
     Route: 065
  14. INSULIN [Concomitant]
     Active Substance: INSULIN NOS
  15. ANZEMET [Concomitant]
     Active Substance: DOLASETRON MESYLATE
     Dosage: THERAPY DATES: 10/MAR/2006, 31/MAR/2006, 21/APR/2006, 18/AUG/2006, 08/SEP/2006, 15/SEP/2006
     Route: 042
     Dates: start: 20060217

REACTIONS (12)
  - Headache [Recovered/Resolved]
  - Confusional state [Recovered/Resolved]
  - Death [Fatal]
  - Lethargy [Recovering/Resolving]
  - Gait disturbance [Recovered/Resolved]
  - Tandem gait test abnormal [Unknown]
  - Central nervous system lesion [Unknown]
  - Nausea [Unknown]
  - Weight decreased [Unknown]
  - Haemoptysis [Unknown]
  - Vomiting [Unknown]
  - Off label use [Unknown]
